FAERS Safety Report 8791345 (Version 1)
Quarter: 2012Q4

REPORT INFORMATION
  Report Type: Spontaneous
  Country: US (occurrence: None)
  Receive Date: 20120912
  Receipt Date: 20120912
  Transmission Date: 20130627
  Serious: Yes (Hospitalization)
  Sender: FDA-Public Use
  Company Number: 1406178

PATIENT
  Age: 50 Year
  Sex: Male

DRUGS (2)
  1. HEPARIN SODIUM [Suspect]
     Indication: ANTICOAGULANT THERAPY
     Dosage: 80 units/kg body 
weight, unknown,
     Route: 040
  2. HEPARIN SODIUM [Suspect]
     Indication: ANTICOAGULANT THERAPY
     Route: 041

REACTIONS (4)
  - Graft loss [None]
  - Renal artery thrombosis [None]
  - Heparin-induced thrombocytopenia [None]
  - Renal infarct [None]
